FAERS Safety Report 10659965 (Version 1)
Quarter: 2014Q4

REPORT INFORMATION
  Report Type: Report from Study
  Country: US (occurrence: US)
  Receive Date: 20141217
  Receipt Date: 20141217
  Transmission Date: 20150529
  Serious: Yes (Hospitalization, Congenital Anomaly, Other)
  Sender: FDA-Public Use
  Company Number: US-ABBVIE-14K-163-1318852-00

PATIENT
  Sex: Female

DRUGS (2)
  1. HUMIRA [Suspect]
     Active Substance: ADALIMUMAB
     Indication: MATERNAL EXPOSURE TIMING UNSPECIFIED
     Route: 064
  2. HUMIRA [Suspect]
     Active Substance: ADALIMUMAB
     Route: 063

REACTIONS (12)
  - Cyanosis [Recovered/Resolved]
  - Growth retardation [Not Recovered/Not Resolved]
  - Aspiration [Recovered/Resolved with Sequelae]
  - Exposure during breast feeding [Unknown]
  - Premature baby [Not Recovered/Not Resolved]
  - Pulse absent [Recovered/Resolved]
  - Congenital vesicoureteric reflux [Not Recovered/Not Resolved]
  - Polydactyly [Not Recovered/Not Resolved]
  - Neonatal respiratory arrest [Recovered/Resolved]
  - Foetal exposure during pregnancy [Unknown]
  - Congenital renal disorder [Not Recovered/Not Resolved]
  - Preauricular cyst [Not Recovered/Not Resolved]

NARRATIVE: CASE EVENT DATE: 2014
